FAERS Safety Report 6531698-X (Version None)
Quarter: 2010Q1

REPORT INFORMATION
  Report Type: 
  Country: None (occurrence: None)
  Receive Date: 20100107
  Receipt Date: 20100107
  Transmission Date: 20100710
  Serious: Yes (Hospitalization)
  Sender: FDA-Public Use
  Company Number: None

PATIENT
  Sex: Male

DRUGS (1)
  1. SORAFENIB 200MG BAYER [Suspect]
     Indication: METASTATIC RENAL CELL CARCINOMA
     Dosage: 800MG BID PO
     Route: 048
     Dates: start: 20090504

REACTIONS (1)
  - PNEUMONIA [None]
